FAERS Safety Report 5295991-3 (Version None)
Quarter: 2007Q2

REPORT INFORMATION
  Report Type: 
  Country: None (occurrence: None)
  Receive Date: 20070413
  Receipt Date: 20070402
  Transmission Date: 20071010
  Serious: Yes (Hospitalization, Other)
  Sender: FDA-Public Use
  Company Number: CA-ELI_LILLY_AND_COMPANY-CA200704001953

PATIENT
  Sex: Female

DRUGS (6)
  1. FORTEO [Suspect]
     Indication: OSTEOPOROSIS
     Dosage: 20 UG, DAILY (1/D)
     Route: 058
     Dates: start: 20061010, end: 20070322
  2. SINEMET [Concomitant]
  3. CEFUROXIME [Concomitant]
  4. CLARITHROMYCIN [Concomitant]
  5. QUETIAPINE FUMARATE [Concomitant]
  6. RABEPRAZOLE SODIUM [Concomitant]

REACTIONS (4)
  - ASTHENIA [None]
  - CONFUSIONAL STATE [None]
  - DIZZINESS [None]
  - PNEUMONIA [None]
